FAERS Safety Report 5661535-7 (Version None)
Quarter: 2008Q1

REPORT INFORMATION
  Report Type: 
  Country: None (occurrence: None)
  Receive Date: 20080306
  Receipt Date: 20080219
  Transmission Date: 20080703
  Serious: Yes (Death, Hospitalization, Disabling)
  Sender: FDA-Public Use
  Company Number: 2005EU001073

PATIENT
  Age: 68 Year
  Sex: Male

DRUGS (7)
  1. FK506(TACROLIMUS CAPSULES) FK506(TACROLIMUS) CAPSULES [Suspect]
     Indication: RENAL TRANSPLANT
     Dosage: 2.5 MG, UID/QD, ORAL
     Route: 048
     Dates: start: 20050426
  2. DACLIZUMAB(BACLIZUMAB) [Suspect]
     Indication: RENAL TRANSPLANT
     Dosage: 170 MG, UID/QD,IV NOS; 85 MG, OTHER, ORAL
     Route: 042
     Dates: start: 20040410, end: 20040410
  3. DACLIZUMAB(BACLIZUMAB) [Suspect]
     Indication: RENAL TRANSPLANT
     Dosage: 170 MG, UID/QD,IV NOS; 85 MG, OTHER, ORAL
     Route: 042
     Dates: start: 20040426, end: 20040621
  4. MYCOPHENOLATE MOFETIL [Suspect]
     Indication: RENAL TRANSPLANT
     Dosage: 250 MG, TID, ORAL
     Route: 048
     Dates: start: 20050426
  5. PREDNISOLONE ACETATE [Suspect]
     Indication: RENAL TRANSPLANT
     Dosage: 5 MG, UID/QD, ORAL
     Route: 048
     Dates: start: 20040426
  6. IRBESARTAN [Concomitant]
  7. ATORVASTATIN CALCIUM [Concomitant]

REACTIONS (2)
  - CENTRAL NERVOUS SYSTEM LYMPHOMA [None]
  - URINARY TRACT INFECTION [None]
